FAERS Safety Report 22162366 (Version 5)
Quarter: 2025Q1

REPORT INFORMATION
  Report Type: Spontaneous
  Country: US (occurrence: US)
  Receive Date: 20230331
  Receipt Date: 20250304
  Transmission Date: 20250408
  Serious: No
  Sender: PFIZER
  Company Number: US-PFIZER INC-PV202300058690

PATIENT
  Age: 54 Year
  Sex: Female

DRUGS (2)
  1. IBRANCE [Suspect]
     Active Substance: PALBOCICLIB
  2. IBRANCE [Suspect]
     Active Substance: PALBOCICLIB

REACTIONS (5)
  - Dry skin [Recovered/Resolved]
  - Sensitive skin [Recovered/Resolved]
  - White blood cell count decreased [Recovered/Resolved]
  - Laboratory test abnormal [Recovered/Resolved]
  - Product dose omission in error [Unknown]

NARRATIVE: CASE EVENT DATE: 20230409
